FAERS Safety Report 7690896-2 (Version None)
Quarter: 2011Q3

REPORT INFORMATION
  Report Type: 
  Country: None (occurrence: None)
  Receive Date: 20110818
  Receipt Date: 20110818
  Transmission Date: 20111222
  Serious: No
  Sender: FDA-Public Use
  Company Number: None

PATIENT
  Age: 57 Year
  Sex: Female
  Weight: 71.214 kg

DRUGS (1)
  1. LISINOPRIL [Suspect]
     Indication: HYPERTENSION
     Dosage: ONE TIME
     Route: 048
     Dates: start: 20101029, end: 20110810

REACTIONS (12)
  - SINUSITIS [None]
  - ABDOMINAL PAIN UPPER [None]
  - RENAL DISORDER [None]
  - DIZZINESS [None]
  - JOINT SWELLING [None]
  - RASH [None]
  - HAEMORRHOIDS [None]
  - HYPERHIDROSIS [None]
  - HYPERTENSION [None]
  - ECONOMIC PROBLEM [None]
  - DYSURIA [None]
  - DIARRHOEA [None]
